FAERS Safety Report 7817925-7 (Version None)
Quarter: 2011Q4

REPORT INFORMATION
  Report Type: 
  Country: None (occurrence: None)
  Receive Date: 20111017
  Receipt Date: 20111011
  Transmission Date: 20120403
  Serious: Yes (Hospitalization)
  Sender: FDA-Public Use
  Company Number: US-GLAXOSMITHKLINE-A0902626A

PATIENT
  Age: 57 Year
  Sex: Male
  Weight: 94.5 kg

DRUGS (6)
  1. ATENOLOL [Concomitant]
  2. LIPITOR [Concomitant]
  3. AVANDIA [Suspect]
     Indication: DIABETES MELLITUS
     Dosage: 4MG PER DAY
     Route: 048
     Dates: start: 20020101, end: 20070621
  4. VIOXX [Concomitant]
  5. LANOXIN [Concomitant]
  6. GLUCOPHAGE [Concomitant]

REACTIONS (3)
  - MYOCARDIAL INFARCTION [None]
  - CARDIAC FAILURE CONGESTIVE [None]
  - CEREBROVASCULAR ACCIDENT [None]
